FAERS Safety Report 4485880-6 (Version None)
Quarter: 2004Q3

REPORT INFORMATION
  Report Type: 
  Country: None (occurrence: None)
  Receive Date: 20040921
  Receipt Date: 20030929
  Transmission Date: 20050211
  Serious: Yes (Hospitalization)
  Sender: FDA-Public Use
  Company Number: 163-20785-03100047

PATIENT
  Age: 61 Year
  Sex: Male

DRUGS (12)
  1. THALOMID [Suspect]
     Indication: MULTIPLE MYELOMA
     Dosage: 100 MG, Q.H.S., ORAL
     Route: 048
     Dates: start: 20030812
  2. PS-341 [Suspect]
     Indication: MULTIPLE MYELOMA
     Dosage: 1.3 MG/M2, INTRAVENOUS
     Route: 042
     Dates: start: 20030721
  3. OXYCONTIN [Concomitant]
  4. NEURONTIN [Concomitant]
  5. VIOXX [Concomitant]
  6. ACYCLOVIR [Concomitant]
  7. PRILOSEC [Concomitant]
  8. ACETYLSALICYLIC ACID SRT [Concomitant]
  9. PERCOCET [Concomitant]
  10. MSO4 (MORPHINE SULFATE) [Concomitant]
  11. MULTIVITAMINS (MULTIVITAMINS) (TABLETS) [Concomitant]
  12. MULTIVITAMINS AND IRON (MULTIVITAMINS AND IRON) [Concomitant]

REACTIONS (2)
  - BACK PAIN [None]
  - SPINAL COMPRESSION FRACTURE [None]
